FAERS Safety Report 9385871 (Version 1)
Quarter: 2013Q3

REPORT INFORMATION
  Report Type: Spontaneous
  Country: FR (occurrence: FR)
  Receive Date: 20130705
  Receipt Date: 20130705
  Transmission Date: 20140515
  Serious: Yes (Hospitalization)
  Sender: FDA-Public Use
  Company Number: FR-009507513-1307FRA000971

PATIENT
  Age: 43 Year
  Sex: Male
  Weight: 91 kg

DRUGS (3)
  1. SINGULAIR [Suspect]
     Dosage: 10 MG, QD
     Route: 048
     Dates: start: 20111025, end: 20130226
  2. SYMBICORT [Concomitant]
     Dosage: UNK
     Dates: start: 20111025
  3. BRICANYL [Concomitant]
     Dosage: UNK
     Dates: start: 20111025

REACTIONS (2)
  - Suicide attempt [Recovered/Resolved]
  - Hallucination [Recovered/Resolved]
